FAERS Safety Report 7302536-2 (Version None)
Quarter: 2011Q1

REPORT INFORMATION
  Report Type: 
  Country: None (occurrence: None)
  Receive Date: 20110218
  Receipt Date: 20110208
  Transmission Date: 20110831
  Serious: No
  Sender: FDA-Public Use
  Company Number: US-PFIZER INC-2011028478

PATIENT
  Sex: Male

DRUGS (1)
  1. XANAX [Suspect]
     Indication: ANXIETY
     Dosage: 2 MG, UNK
     Dates: start: 20100101, end: 20100101

REACTIONS (1)
  - DRUG INEFFECTIVE [None]
